FAERS Safety Report 15019064 (Version 1)
Quarter: 2018Q2

REPORT INFORMATION
  Report Type: Spontaneous
  Country: US (occurrence: US)
  Receive Date: 20180524
  Receipt Date: 20180524
  Transmission Date: 20180711
  Serious: No
  Sender: FDA-Public Use
  Company Number: None

PATIENT
  Sex: Female

DRUGS (1)
  1. FORTEO [Suspect]
     Active Substance: TERIPARATIDE
     Indication: OSTEOPOROSIS
     Route: 058
     Dates: start: 201802, end: 201804

REACTIONS (6)
  - Dyspnoea [None]
  - Chest pain [None]
  - Fatigue [None]
  - Muscular weakness [None]
  - Abdominal discomfort [None]
  - Gait disturbance [None]
